FAERS Safety Report 20446621 (Version 1)
Quarter: 2022Q1

REPORT INFORMATION
  Report Type: Spontaneous
  Country: US (occurrence: US)
  Receive Date: 20220208
  Receipt Date: 20220208
  Transmission Date: 20220423
  Serious: No
  Sender: FDA-Public Use
  Company Number: US-IBSA PHARMA INC.-2021IBS000139

PATIENT

DRUGS (1)
  1. TIROSINT-SOL [Suspect]
     Active Substance: LEVOTHYROXINE SODIUM
     Indication: Hypothyroidism
     Dosage: 150 ?G, QD
     Route: 048
     Dates: start: 2021, end: 2021

REACTIONS (4)
  - Blood thyroid stimulating hormone increased [Not Recovered/Not Resolved]
  - Drug ineffective [Unknown]
  - Tri-iodothyronine decreased [Unknown]
  - Thyroxine decreased [Unknown]

NARRATIVE: CASE EVENT DATE: 20210101
